FAERS Safety Report 24307921 (Version 1)
Quarter: 2024Q3

REPORT INFORMATION
  Report Type: Report from Study
  Country: US (occurrence: US)
  Receive Date: 20240911
  Receipt Date: 20240911
  Transmission Date: 20241017
  Serious: Yes (Hospitalization, Other)
  Sender: IOVANCE BIOTHERAPEUTICS
  Company Number: US-IOVANCE BIOTHERAPEUTICS INC.-IOV2024000015

PATIENT

DRUGS (4)
  1. ALDESLEUKIN [Suspect]
     Active Substance: ALDESLEUKIN
     Indication: Product used for unknown indication
     Dosage: UNK
     Route: 042
     Dates: start: 20240625, end: 20240630
  2. CYCLOPHOSPHAMIDE [Suspect]
     Active Substance: CYCLOPHOSPHAMIDE
     Indication: Lymphodepletion
     Dosage: UNK
     Route: 065
     Dates: start: 20240621, end: 20240622
  3. FLUDARABINE [Suspect]
     Active Substance: FLUDARABINE PHOSPHATE
     Indication: Lymphodepletion
     Dosage: UNK
     Route: 065
     Dates: start: 20240623, end: 20240627
  4. LIFILEUCEL [Suspect]
     Active Substance: LIFILEUCEL
     Indication: Product used for unknown indication
     Dosage: UNK
     Route: 065
     Dates: start: 20240628, end: 20240628

REACTIONS (1)
  - Febrile neutropenia [Recovered/Resolved]

NARRATIVE: CASE EVENT DATE: 20240629
